FAERS Safety Report 6907292-5 (Version None)
Quarter: 2010Q3

REPORT INFORMATION
  Report Type: 
  Country: None (occurrence: None)
  Receive Date: 20100730
  Receipt Date: 20100722
  Transmission Date: 20110219
  Serious: Yes (Death, Life-Threatening, Hospitalization, Other)
  Sender: FDA-Public Use
  Company Number: 2009AC000187

PATIENT
  Age: 73 Year
  Sex: Female

DRUGS (53)
  1. DIGOXIN [Suspect]
     Indication: ATRIAL FIBRILLATION
     Dosage: 125 MCG; QD; PO
     Route: 048
     Dates: start: 20070101, end: 20070426
  2. DIGOXIN [Suspect]
     Indication: ATRIAL FIBRILLATION
     Dates: start: 19950201, end: 19950213
  3. PROTONIX [Concomitant]
  4. DEPAKOTE [Concomitant]
  5. COREG [Concomitant]
  6. ASPIRIN [Concomitant]
  7. LASIX [Concomitant]
  8. CENTRUM SILVER [Concomitant]
  9. MEGACE [Concomitant]
  10. COUMADIN [Concomitant]
  11. CARTIA XT [Concomitant]
  12. BIOTIN [Concomitant]
  13. COENZYME Q10 [Concomitant]
  14. L-CARITINE [Concomitant]
  15. CALAN [Concomitant]
  16. POTASSIUM [Concomitant]
  17. HYDRALAZINE HCL [Concomitant]
  18. DEMADEX [Concomitant]
  19. BIAXIN [Concomitant]
  20. DEPAKOTE [Concomitant]
  21. ROCEPHIN [Concomitant]
  22. MULTI-VITAMIN [Concomitant]
  23. RENAGEL [Concomitant]
  24. DIATEK [Concomitant]
  25. NITROGLYCERIN [Concomitant]
  26. DETROL [Concomitant]
  27. POTASSIUM [Concomitant]
  28. HYDRALAZINE HCL [Concomitant]
  29. LORCET-HD [Concomitant]
  30. VITAMIN B-12 [Concomitant]
  31. ASPIRIN [Concomitant]
  32. PRINIVIL [Concomitant]
  33. AMIODARONE HCL [Concomitant]
  34. CIPRO [Concomitant]
  35. PHENERGAN [Concomitant]
  36. RENAGEL [Concomitant]
  37. NITRO-DUR [Concomitant]
  38. KLOR-CON [Concomitant]
  39. FERROUS SULFATE [Concomitant]
  40. PROTONIX [Concomitant]
  41. HYDRALAZINE HCL [Concomitant]
  42. FUROSEMIDE [Concomitant]
  43. DETROL [Concomitant]
  44. VIACTIV [Concomitant]
  45. CEPHALEXIN [Concomitant]
  46. DEPAKOTE [Concomitant]
  47. PROTONIX [Concomitant]
  48. MEGESTROL [Concomitant]
  49. LEVAQUIN [Concomitant]
  50. LOVENOX [Concomitant]
  51. FLAGYL [Concomitant]
  52. HEPARIN [Concomitant]
  53. CARDIZEM [Concomitant]

REACTIONS (62)
  - ABDOMINAL DISCOMFORT [None]
  - ACUTE PULMONARY OEDEMA [None]
  - ACUTE RESPIRATORY FAILURE [None]
  - ARRHYTHMIA [None]
  - ASTHENIA [None]
  - ATRIAL FIBRILLATION [None]
  - CARDIAC FAILURE CONGESTIVE [None]
  - CARDIOGENIC SHOCK [None]
  - CARDIOMEGALY [None]
  - CARDIOMYOPATHY [None]
  - CHRONIC OBSTRUCTIVE PULMONARY DISEASE [None]
  - DECREASED APPETITE [None]
  - DEHYDRATION [None]
  - DIARRHOEA [None]
  - DIVERTICULUM [None]
  - DIZZINESS [None]
  - DYSPNOEA [None]
  - DYSPNOEA EXERTIONAL [None]
  - DYSPNOEA PAROXYSMAL NOCTURNAL [None]
  - ECONOMIC PROBLEM [None]
  - ELECTROCARDIOGRAM ST-T CHANGE [None]
  - GAIT DISTURBANCE [None]
  - GASTROOESOPHAGEAL REFLUX DISEASE [None]
  - GRAND MAL CONVULSION [None]
  - HEART RATE IRREGULAR [None]
  - HIP FRACTURE [None]
  - HYPERCOAGULATION [None]
  - HYPERTENSION [None]
  - HYPOKALAEMIA [None]
  - HYPOTENSION [None]
  - ILEUS [None]
  - LOSS OF CONSCIOUSNESS [None]
  - MACULAR DEGENERATION [None]
  - MACULAR HOLE [None]
  - MALNUTRITION [None]
  - MULTIPLE INJURIES [None]
  - NAUSEA [None]
  - ORAL HERPES [None]
  - ORTHOPNOEA [None]
  - PALPITATIONS [None]
  - PHARYNGITIS [None]
  - PLEURAL EFFUSION [None]
  - PNEUMONIA [None]
  - PNEUMONIA RESPIRATORY SYNCYTIAL VIRAL [None]
  - PROTHROMBIN TIME PROLONGED [None]
  - RENAL FAILURE ACUTE [None]
  - RENAL FAILURE CHRONIC [None]
  - RESPIRATORY ARREST [None]
  - RESPIRATORY FAILURE [None]
  - SMALL INTESTINAL OBSTRUCTION [None]
  - SMALL INTESTINE GANGRENE [None]
  - STRESS URINARY INCONTINENCE [None]
  - SUPRAVENTRICULAR TACHYCARDIA [None]
  - TACHYCARDIA [None]
  - THERAPEUTIC AGENT TOXICITY [None]
  - TYPE 2 DIABETES MELLITUS [None]
  - UNDERWEIGHT [None]
  - URINARY TRACT INFECTION [None]
  - VENTRICULAR ARRHYTHMIA [None]
  - VENTRICULAR EXTRASYSTOLES [None]
  - VENTRICULAR TACHYCARDIA [None]
  - VOMITING [None]
